FAERS Safety Report 6767647-9 (Version None)
Quarter: 2010Q2

REPORT INFORMATION
  Report Type: 
  Country: None (occurrence: None)
  Receive Date: 20100610
  Receipt Date: 20100528
  Transmission Date: 20101027
  Serious: Yes (Hospitalization, Other)
  Sender: FDA-Public Use
  Company Number: JPI-P-010742

PATIENT
  Age: 58 Year
  Sex: Female
  Weight: 113.3993 kg

DRUGS (6)
  1. XYREM [Suspect]
     Indication: NARCOLEPSY
     Dosage: ORAL, 4.5 GM (4.5 GM, 1 IN 1 D), ORAL
     Route: 048
     Dates: start: 20070101
  2. CELECOXIB [Suspect]
     Indication: FIBROMYALGIA
     Dosage: 200 MG, 1 D, ORAL
     Route: 048
     Dates: start: 20040101
  3. METHYLPHENIDATE [Concomitant]
  4. SERTRALINE HCL [Concomitant]
  5. TRAMADOL HCL [Concomitant]
  6. PREGABALIN [Concomitant]

REACTIONS (5)
  - CYSTITIS [None]
  - DEHYDRATION [None]
  - DYSARTHRIA [None]
  - HYPOTENSION [None]
  - RENAL FAILURE [None]
